FAERS Safety Report 6075650-X (Version None)
Quarter: 2009Q1

REPORT INFORMATION
  Report Type: 
  Country: None (occurrence: None)
  Receive Date: 20090210
  Receipt Date: 20090210
  Transmission Date: 20090719
  Serious: Yes (Other)
  Sender: FDA-Public Use
  Company Number: None

PATIENT
  Age: 68 Year
  Sex: Male
  Weight: 99.7913 kg

DRUGS (1)
  1. CASODEX [Suspect]
     Indication: PROSTATE CANCER
     Dosage: 50MG DAILY PO
     Route: 048
     Dates: start: 20070421, end: 20090209

REACTIONS (3)
  - ECZEMA [None]
  - SEBORRHOEIC DERMATITIS [None]
  - SKIN DISORDER [None]
